FAERS Safety Report 6812186-X (Version None)
Quarter: 2010Q3

REPORT INFORMATION
  Report Type: 
  Country: None (occurrence: None)
  Receive Date: 20100701
  Receipt Date: 20100622
  Transmission Date: 20110219
  Serious: Yes (Hospitalization)
  Sender: FDA-Public Use
  Company Number: FR-ASTRAZENECA-2010SE29348

PATIENT
  Age: 26808 Day
  Sex: Female

DRUGS (17)
  1. NAROPIN [Suspect]
     Route: 050
     Dates: start: 20100420, end: 20100420
  2. PROPOFOL [Suspect]
     Route: 042
     Dates: start: 20100420, end: 20100420
  3. ATRACURIUM HOSPIRA [Suspect]
     Route: 042
     Dates: start: 20100420, end: 20100420
  4. ULTIVA [Suspect]
     Route: 042
     Dates: start: 20100420, end: 20100420
  5. NORMACOL [Suspect]
     Route: 054
     Dates: start: 20100419, end: 20100419
  6. BETADINE [Suspect]
     Dosage: DERMAL
     Route: 003
     Dates: start: 20100419, end: 20100420
  7. BETADINE [Suspect]
     Route: 067
     Dates: start: 20100420, end: 20100420
  8. AUGMENTIN '125' [Suspect]
     Dosage: 3G + 300MG (2G+200 MG, AND THEN 1G+100 MG)
     Route: 042
     Dates: start: 20100420, end: 20100420
  9. NEURONTIN [Suspect]
     Route: 048
     Dates: start: 20100419, end: 20100419
  10. NEURONTIN [Suspect]
     Dosage: 600 MG 2 HOURS BEFORE THE SURGERY
     Route: 048
     Dates: start: 20100420, end: 20100420
  11. KETAMINE HCL [Suspect]
     Route: 042
     Dates: start: 20100419, end: 20100420
  12. LOVENOX [Suspect]
     Dosage: 0.4 ML
     Route: 058
     Dates: start: 20100419, end: 20100420
  13. CALCIUM CHLORIDE [Suspect]
     Dosage: 2G
     Route: 042
     Dates: start: 20100420, end: 20100420
  14. GENTAMICINE PANPHARMA [Suspect]
     Dosage: 240 MG
     Route: 042
     Dates: start: 20100420, end: 20100420
  15. COTAREG [Concomitant]
  16. LEVOTHYROXINE SODIUM [Concomitant]
  17. OPHTIM [Concomitant]

REACTIONS (4)
  - HAEMATURIA [None]
  - LYMPHOPENIA [None]
  - OLIGURIA [None]
  - RENAL FAILURE ACUTE [None]
